FAERS Safety Report 25850628 (Version 7)
Quarter: 2025Q4

REPORT INFORMATION
  Report Type: Spontaneous
  Country: EU (occurrence: EU)
  Receive Date: 20250926
  Receipt Date: 20251021
  Transmission Date: 20260117
  Serious: Yes (Life-Threatening, Hospitalization, Other)
  Sender: AUROBINDO
  Company Number: EU-PFIZER INC-202400329301

PATIENT
  Sex: Female
  Weight: 50 kg

DRUGS (45)
  1. MELPHALAN [Suspect]
     Active Substance: MELPHALAN
     Indication: Bone marrow conditioning regimen
     Dosage: UNK
     Route: 065
  2. VANCOMYCIN [Suspect]
     Active Substance: VANCOMYCIN
     Indication: Febrile neutropenia
     Dosage: 500 MILLIGRAM, ONCE A DAY (500 MILLIGRAM, BID)
     Route: 042
  3. VANCOMYCIN [Suspect]
     Active Substance: VANCOMYCIN
     Indication: Pseudomonas infection
  4. VANCOMYCIN [Suspect]
     Active Substance: VANCOMYCIN
     Indication: Evidence based treatment
  5. VANCOMYCIN [Suspect]
     Active Substance: VANCOMYCIN
     Indication: Antibiotic therapy
  6. PIPERACILLIN SODIUM\TAZOBACTAM SODIUM [Suspect]
     Active Substance: PIPERACILLIN SODIUM\TAZOBACTAM SODIUM
     Indication: Drug therapy
     Dosage: UNK
     Route: 065
  7. PIPERACILLIN SODIUM\TAZOBACTAM SODIUM [Suspect]
     Active Substance: PIPERACILLIN SODIUM\TAZOBACTAM SODIUM
     Indication: Febrile neutropenia
  8. LINEZOLID [Suspect]
     Active Substance: LINEZOLID
     Indication: Proctalgia
     Dosage: UNK
     Route: 065
  9. LINEZOLID [Suspect]
     Active Substance: LINEZOLID
     Indication: Product used for unknown indication
  10. AVIBACTAM SODIUM\CEFTAZIDIME [Suspect]
     Active Substance: AVIBACTAM SODIUM\CEFTAZIDIME
     Indication: Evidence based treatment
     Dosage: UNK
     Route: 065
  11. AVIBACTAM SODIUM\CEFTAZIDIME [Suspect]
     Active Substance: AVIBACTAM SODIUM\CEFTAZIDIME
     Indication: Antibiotic therapy
  12. AVIBACTAM SODIUM\CEFTAZIDIME [Suspect]
     Active Substance: AVIBACTAM SODIUM\CEFTAZIDIME
     Indication: Pseudomonas infection
  13. MYCOPHENOLATE MOFETIL [Suspect]
     Active Substance: MYCOPHENOLATE MOFETIL
     Indication: Immunosuppressant drug therapy
     Dosage: UNK
     Route: 065
  14. AZACITIDINE [Suspect]
     Active Substance: AZACITIDINE
     Indication: Acute undifferentiated leukaemia
     Dosage: UNK
     Route: 065
  15. CYCLOPHOSPHAMIDE [Suspect]
     Active Substance: CYCLOPHOSPHAMIDE
     Indication: Immunosuppressant drug therapy
     Dosage: UNK
     Route: 065
  16. CYCLOSPORINE [Suspect]
     Active Substance: CYCLOSPORINE
     Indication: Immunosuppressant drug therapy
     Dosage: UNK (FROM DAY -1 (TRANSPLANT))
     Route: 065
  17. MEROPENEM [Suspect]
     Active Substance: MEROPENEM
     Indication: Product used for unknown indication
     Dosage: UNK
     Route: 065
  18. COLISTIMETHATE SODIUM [Suspect]
     Active Substance: COLISTIMETHATE SODIUM
     Indication: Pseudomonas infection
     Dosage: UNK
     Route: 065
  19. COLISTIMETHATE SODIUM [Suspect]
     Active Substance: COLISTIMETHATE SODIUM
     Indication: Proctalgia
  20. AMIKACIN [Suspect]
     Active Substance: AMIKACIN
     Indication: Febrile neutropenia
     Dosage: UNK
     Route: 065
  21. AMIKACIN [Suspect]
     Active Substance: AMIKACIN
     Indication: Evidence based treatment
  22. AMIKACIN [Suspect]
     Active Substance: AMIKACIN
     Indication: Antibiotic therapy
  23. DAUNORUBICIN [Suspect]
     Active Substance: DAUNORUBICIN
     Indication: Acute myeloid leukaemia
     Dosage: UNK
     Route: 065
     Dates: start: 2024
  24. CILASTATIN\IMIPENEM\RELEBACTAM [Suspect]
     Active Substance: CILASTATIN\IMIPENEM\RELEBACTAM
     Indication: Pseudomonas infection
     Dosage: UNK
     Route: 065
  25. CYTARABINE [Suspect]
     Active Substance: CYTARABINE
     Indication: Acute undifferentiated leukaemia
     Dosage: UNK
     Route: 065
  26. IDARUBICIN [Suspect]
     Active Substance: IDARUBICIN
     Indication: Acute myeloid leukaemia
     Dosage: UNK (STARTED ON DAY 25)
     Route: 065
     Dates: start: 2024
  27. FLUDARABINE [Suspect]
     Active Substance: FLUDARABINE PHOSPHATE
     Indication: Acute myeloid leukaemia
     Dosage: UNK (30 MG/M2, QD, STARTED ON DAY 25)
     Route: 065
     Dates: start: 2024
  28. FLUDARABINE [Suspect]
     Active Substance: FLUDARABINE PHOSPHATE
     Indication: Bone marrow conditioning regimen
  29. VENETOCLAX [Suspect]
     Active Substance: VENETOCLAX
     Indication: Acute myeloid leukaemia
     Dosage: UNK (STARTED ON DAY 25 OF CHEMOTHERAPY)
     Route: 065
     Dates: start: 2024
  30. VENETOCLAX [Suspect]
     Active Substance: VENETOCLAX
     Dosage: UNK UNK, CYCLICAL (TWO CYCLES AT 4-5 WEEK INTERVALS)
     Route: 065
  31. FENTANYL [Concomitant]
     Active Substance: FENTANYL
     Indication: Analgesic therapy
     Dosage: UNK
     Route: 062
  32. FENTANYL [Concomitant]
     Active Substance: FENTANYL
     Indication: Proctalgia
  33. COLISTIN SULFATE [Suspect]
     Active Substance: COLISTIN SULFATE
     Indication: Pseudomonas infection
     Route: 065
  34. FOSFOMYCIN [Concomitant]
     Active Substance: FOSFOMYCIN
     Indication: Febrile neutropenia
     Dosage: UNK
     Route: 065
  35. FOSFOMYCIN [Concomitant]
     Active Substance: FOSFOMYCIN
     Indication: Febrile neutropenia
  36. FOSFOMYCIN [Concomitant]
     Active Substance: FOSFOMYCIN
     Indication: Evidence based treatment
  37. DICLOFENAC [Concomitant]
     Active Substance: DICLOFENAC
     Indication: Analgesic therapy
     Dosage: UNK
     Route: 042
  38. DICLOFENAC [Concomitant]
     Active Substance: DICLOFENAC
     Indication: Proctalgia
  39. FILGRASTIM [Concomitant]
     Active Substance: FILGRASTIM
     Indication: Febrile neutropenia
     Dosage: UNK
     Route: 065
  40. MELPHALAN [Concomitant]
     Active Substance: MELPHALAN
     Indication: Bone marrow conditioning regimen
     Dosage: UNK
     Route: 065
  41. MELPHALAN [Concomitant]
     Active Substance: MELPHALAN
     Indication: Acute undifferentiated leukaemia
  42. HYDROXYUREA [Concomitant]
     Active Substance: HYDROXYUREA
     Indication: Hyperleukocytosis
     Dosage: UNK
     Route: 065
  43. POSACONAZOLE [Concomitant]
     Active Substance: POSACONAZOLE
     Indication: Antifungal prophylaxis
     Dosage: UNK
     Route: 065
     Dates: start: 2024
  44. POSACONAZOLE [Concomitant]
     Active Substance: POSACONAZOLE
     Indication: Systemic mycosis
  45. CEFIDEROCOL [Concomitant]
     Active Substance: CEFIDEROCOL
     Indication: Pseudomonas infection
     Dosage: UNK
     Route: 065

REACTIONS (20)
  - Sepsis [Recovering/Resolving]
  - Renal failure [Recovering/Resolving]
  - Nephropathy toxic [Recovering/Resolving]
  - Pseudomonas infection [Recovered/Resolved]
  - Drug ineffective [Unknown]
  - Pathogen resistance [Recovered/Resolved]
  - Febrile neutropenia [Recovered/Resolved]
  - Cellulitis [Recovered/Resolved]
  - Erythema [Recovered/Resolved]
  - Skin maceration [Recovered/Resolved]
  - Soft tissue infection [Recovered/Resolved]
  - Tissue infiltration [Recovered/Resolved]
  - Thrombocytopenia [Recovered/Resolved]
  - Ototoxicity [Unknown]
  - Neutropenia [Recovered/Resolved]
  - Toxicity to various agents [Unknown]
  - Parainfluenzae virus infection [Unknown]
  - Rhinorrhoea [Unknown]
  - Cough [Unknown]
  - Off label use [Unknown]

NARRATIVE: CASE EVENT DATE: 20240601
